FAERS Safety Report 9670014 (Version 2)
Quarter: 2013Q4

REPORT INFORMATION
  Report Type: Report from Study
  Country: US (occurrence: US)
  Receive Date: 20131105
  Receipt Date: 20131105
  Transmission Date: 20140711
  Serious: Yes (Other)
  Sender: FDA-Public Use
  Company Number: US-ABBVIE-13P-163-1123368-00

PATIENT
  Age: 48 Year
  Sex: Female
  Weight: 100.33 kg

DRUGS (15)
  1. HUMIRA [Suspect]
     Indication: RHEUMATOID ARTHRITIS
     Route: 058
     Dates: start: 20121016, end: 20130717
  2. CYMBALTA [Concomitant]
     Indication: PAIN
     Dosage: DELAYED RELEASE
     Route: 048
  3. DOXEPIN [Concomitant]
     Indication: URTICARIA
     Dosage: AT BEDTIME, AS NEEDED
  4. METHOTREXATE [Concomitant]
     Indication: RHEUMATOID ARTHRITIS
     Dosage: SYRINGE (DISPOSABLE), WEEKLY
     Route: 058
  5. FOLIC ACID [Concomitant]
     Indication: PRODUCT USED FOR UNKNOWN INDICATION
     Dosage: 2 MG EVERY DAY
     Route: 048
  6. METHOTREXATE [Concomitant]
     Indication: PRODUCT USED FOR UNKNOWN INDICATION
     Dosage: INSULIN SYRINGE ULTRAFINE 1/2 ML 29 X 1/2^, WEEKLY INJECTIONS
  7. LORAZEPAM [Concomitant]
     Indication: MOVEMENT DISORDER
     Dosage: EVERY DAY AS NEEDED
  8. METHOTREXATE SODIUM [Concomitant]
     Indication: RHEUMATOID ARTHRITIS
     Dosage: 25 MG/ML, EVERY WEEK
     Route: 058
  9. NAPROXEN [Concomitant]
     Indication: RHEUMATOID ARTHRITIS
     Dosage: WITH FOOD
     Route: 048
  10. PLAQUENIL [Concomitant]
     Indication: RHEUMATOID ARTHRITIS
     Dosage: 400 MG EVERY DAY
     Route: 048
  11. PREDNISONE [Concomitant]
     Indication: PRODUCT USED FOR UNKNOWN INDICATION
     Dosage: FOR TWO WEEKS
     Route: 048
  12. PREDNISONE [Concomitant]
  13. TYLENOL ARTHRITIS [Concomitant]
     Indication: VITAMIN D DEFICIENCY
     Dosage: EXTENDED RELEASE, EVERY EIGHT HOURS AS NEEDED
  14. TYLENOL ARTHRITIS [Concomitant]
     Dosage: EVERY WEEK
     Route: 048
  15. VITAMIN D2 [Concomitant]
     Indication: RHEUMATOID ARTHRITIS

REACTIONS (3)
  - Repetitive speech [Unknown]
  - Dyskinesia [Unknown]
  - Emotional disorder [Recovering/Resolving]
